FAERS Safety Report 5263567-X (Version None)
Quarter: 2007Q1

REPORT INFORMATION
  Report Type: 
  Country: None (occurrence: None)
  Receive Date: 20070313
  Receipt Date: 20070307
  Transmission Date: 20070707
  Serious: Yes (Hospitalization)
  Sender: FDA-Public Use
  Company Number: US-BRISTOL-MYERS SQUIBB COMPANY-13417241

PATIENT
  Age: 70 Year
  Sex: Male

DRUGS (31)
  1. CARBOPLATIN [Suspect]
     Indication: NON-SMALL CELL LUNG CANCER
     Route: 042
     Dates: start: 20060601, end: 20060601
  2. DOCETAXEL [Suspect]
     Indication: NON-SMALL CELL LUNG CANCER
     Route: 042
     Dates: start: 20060601, end: 20060601
  3. NORVASC [Concomitant]
     Dates: start: 20050601
  4. KLOR-CON M [Concomitant]
     Dates: start: 20050601
  5. LASIX [Concomitant]
     Dates: start: 20050601
  6. PREDNISONE [Concomitant]
     Dates: start: 20051101
  7. ALTACE [Concomitant]
     Dates: start: 20050601
  8. TOPROL-XL [Concomitant]
     Dates: start: 20050601
  9. PLAQUENIL [Concomitant]
     Dates: start: 20050601
  10. NAPROSYN [Concomitant]
     Dates: start: 20051101, end: 20060616
  11. PRAVACHOL [Concomitant]
     Dates: start: 20051101
  12. METHOTREXATE [Concomitant]
     Dates: start: 20051101
  13. FENTANYL TRANSDERMAL SYSTEM [Concomitant]
     Dates: start: 20051101
  14. GLIPIZIDE [Concomitant]
     Dates: start: 19920101
  15. LYRICA [Concomitant]
     Dates: start: 20051101
  16. VITAMIN B-12 [Concomitant]
     Dates: start: 20050601
  17. VITAMIN B6 [Concomitant]
     Dates: start: 20050601
  18. FOLIC ACID [Concomitant]
     Dates: start: 20050601
  19. IRON [Concomitant]
     Dates: start: 20050601
  20. ASPIRIN [Concomitant]
     Dates: start: 20050601
  21. CALCIUM [Concomitant]
     Dates: start: 20050601
  22. VITAMIN D [Concomitant]
     Dates: start: 20050601
  23. ASCORBIC ACID [Concomitant]
     Dates: start: 20050601
  24. GERITOL [Concomitant]
     Dates: start: 20050601
  25. VITAMIN E [Concomitant]
     Dates: start: 20050601
  26. PHENERGAN HCL [Concomitant]
     Dates: start: 20051101
  27. IMODIUM [Concomitant]
     Dates: start: 20060607, end: 20060608
  28. ATIVAN [Concomitant]
     Dates: start: 20060608, end: 20060608
  29. ALOXI [Concomitant]
     Dates: start: 20060608, end: 20060608
  30. DECADRON [Concomitant]
     Dates: start: 20060608, end: 20060608
  31. SODIUM CHLORIDE [Concomitant]
     Dates: start: 20060608, end: 20060608

REACTIONS (1)
  - GASTROINTESTINAL HAEMORRHAGE [None]
